FAERS Safety Report 22318020 (Version 1)
Quarter: 2023Q2

REPORT INFORMATION
  Report Type: Spontaneous
  Country: US (occurrence: US)
  Receive Date: 20230515
  Receipt Date: 20230515
  Transmission Date: 20230721
  Serious: Yes (Death, Hospitalization, Other)
  Sender: FDA-Public Use
  Company Number: US-APOTEX-2023AP008100

PATIENT
  Age: 24 Year
  Sex: Male

DRUGS (2)
  1. CYCLOSPORINE [Suspect]
     Active Substance: CYCLOSPORINE
     Indication: Focal segmental glomerulosclerosis
     Dosage: UNK
     Route: 065
  2. PREDNISONE [Concomitant]
     Active Substance: PREDNISONE
     Indication: Focal segmental glomerulosclerosis
     Dosage: 80 MILLIGRAM, QD
     Route: 065

REACTIONS (5)
  - Pneumonia cryptococcal [Fatal]
  - Necrotising fasciitis [Unknown]
  - Escherichia peritonitis [Unknown]
  - Postoperative wound infection [Unknown]
  - Clostridium difficile colitis [Unknown]
